FAERS Safety Report 5209808-6 (Version None)
Quarter: 2006Q4

REPORT INFORMATION
  Report Type: 
  Country: None (occurrence: None)
  Receive Date: 20061128
  Receipt Date: 20060824
  Transmission Date: 20070319
  Serious: No
  Sender: FDA-Public Use
  Company Number: S06-USA-03414-01

PATIENT
  Age: 45 Year
  Sex: Female

DRUGS (9)
  1. CAMPRAL [Suspect]
     Indication: ALCOHOLISM
     Dosage: 666 MG TID PO
     Route: 048
     Dates: start: 20060814
  2. PROTONIX [Concomitant]
  3. ALDACTONE [Concomitant]
  4. LACTULOSE [Concomitant]
  5. FUROSEMIDE [Concomitant]
  6. LEVOXYL [Concomitant]
  7. POTASSIUM ACETATE [Concomitant]
  8. MAGNESIUM [Concomitant]
  9. VITAMINS [Concomitant]

REACTIONS (1)
  - DRUG SCREEN FALSE POSITIVE [None]
